FAERS Safety Report 6172071-6 (Version None)
Quarter: 2009Q2

REPORT INFORMATION
  Report Type: 
  Country: None (occurrence: None)
  Receive Date: 20090429
  Receipt Date: 20090422
  Transmission Date: 20091009
  Serious: Yes (Death, Life-Threatening, Other)
  Sender: FDA-Public Use
  Company Number: FR-TEVA-192794ISR

PATIENT
  Sex: Female

DRUGS (3)
  1. METHOTREXATE [Suspect]
     Route: 037
     Dates: start: 20081216, end: 20081216
  2. CYTARABINE [Suspect]
     Route: 037
     Dates: start: 20081216, end: 20081216
  3. METHYLPREDNISOLONE 4MG TAB [Suspect]
     Route: 037
     Dates: start: 20081216, end: 20081216

REACTIONS (1)
  - AXONAL NEUROPATHY [None]
